FAERS Safety Report 9017548 (Version 1)
Quarter: 2013Q1

REPORT INFORMATION
  Report Type: Spontaneous
  Country: US (occurrence: US)
  Receive Date: 20130117
  Receipt Date: 20130117
  Transmission Date: 20140127
  Serious: Yes (Other)
  Sender: FDA-Public Use
  Company Number: CHPA2013US000865

PATIENT
  Age: 67 Year
  Sex: Female

DRUGS (2)
  1. EXCEDRIN EXTRA STRENGTH [Suspect]
     Indication: RHEUMATOID ARTHRITIS
     Dosage: 2 PILLS, 2 TO 3 TIMES DAILY
     Route: 048
     Dates: end: 201204
  2. HORMONES [Concomitant]

REACTIONS (2)
  - Rheumatoid arthritis [Not Recovered/Not Resolved]
  - Incorrect drug administration duration [Unknown]
